FAERS Safety Report 7158501-1 (Version None)
Quarter: 2010Q4

REPORT INFORMATION
  Report Type: 
  Country: None (occurrence: None)
  Receive Date: 20101214
  Receipt Date: 20100510
  Transmission Date: 20110411
  Serious: No
  Sender: FDA-Public Use
  Company Number: US-ASTRAZENECA-2010SE21336

PATIENT
  Age: 40 Year
  Sex: Male
  Weight: 104.3 kg

DRUGS (3)
  1. CRESTOR [Suspect]
     Route: 048
     Dates: start: 20090901
  2. ADVAIR DISKUS 100/50 [Concomitant]
  3. RESCUE INHALER [Concomitant]

REACTIONS (4)
  - ANGINA PECTORIS [None]
  - DRUG DOSE OMISSION [None]
  - DYSPNOEA [None]
  - NERVOUSNESS [None]
